FAERS Safety Report 19986782 (Version 1)
Quarter: 2021Q4

REPORT INFORMATION
  Report Type: Spontaneous
  Country: US (occurrence: US)
  Receive Date: 20211022
  Receipt Date: 20211022
  Transmission Date: 20220304
  Serious: Yes (Death, Other)
  Sender: FDA-Public Use
  Company Number: US-GLAXOSMITHKLINE-US2021GSK218932

PATIENT
  Sex: Male

DRUGS (8)
  1. ZANTAC [Suspect]
     Active Substance: RANITIDINE HYDROCHLORIDE
     Indication: Abdominal discomfort
     Dosage: 75 MG QD (LOWER AMT TO A HIGHER AMT
     Dates: start: 201501, end: 201901
  2. ZANTAC [Suspect]
     Active Substance: RANITIDINE HYDROCHLORIDE
     Indication: Flatulence
     Dosage: 150 MG, QD
     Dates: start: 201501, end: 201901
  3. ZANTAC [Suspect]
     Active Substance: RANITIDINE HYDROCHLORIDE
     Indication: Abdominal discomfort
     Dosage: 75 MG QD  LOWER AMT TO A HIGHER AMT
     Dates: start: 201501, end: 201901
  4. ZANTAC [Suspect]
     Active Substance: RANITIDINE HYDROCHLORIDE
     Indication: Flatulence
     Dosage: 150 MG, QD
     Dates: start: 201501, end: 201901
  5. ZANTAC [Suspect]
     Active Substance: RANITIDINE HYDROCHLORIDE
     Indication: Abdominal discomfort
     Dosage: 75 MG QD LOWER AMT TO A HIGHER AMT
     Dates: start: 201501, end: 201901
  6. ZANTAC [Suspect]
     Active Substance: RANITIDINE HYDROCHLORIDE
     Indication: Flatulence
     Dosage: 150 MG, QD
     Dates: start: 201501, end: 201901
  7. RANITIDINE [Suspect]
     Active Substance: RANITIDINE
     Indication: Abdominal discomfort
     Dosage: 75 MG QD LOWER AMT TO A HIGHER AMT
     Dates: start: 201501, end: 201901
  8. RANITIDINE [Suspect]
     Active Substance: RANITIDINE
     Indication: Flatulence
     Dosage: 150 MG, QD
     Dates: start: 201501, end: 201901

REACTIONS (2)
  - Death [Fatal]
  - Hepatic cancer [Unknown]
